FAERS Safety Report 14346678 (Version 1)
Quarter: 2018Q1

REPORT INFORMATION
  Report Type: Report from Study
  Country: JP (occurrence: JP)
  Receive Date: 20180103
  Receipt Date: 20180103
  Transmission Date: 20180509
  Serious: Yes (Hospitalization, Other)
  Sender: FDA-Public Use
  Company Number: JP-VIFOR (INTERNATIONAL) INC.-VIT-2017-14402

PATIENT
  Age: 54 Year
  Sex: Male

DRUGS (30)
  1. MIRCERA [Suspect]
     Active Substance: METHOXY POLYETHYLENE GLYCOL-EPOETIN BETA
     Indication: NEPHROGENIC ANAEMIA
     Route: 042
     Dates: start: 20140114
  2. PL [Concomitant]
     Active Substance: ACETAMINOPHEN\CAFFEINE\PROMETHAZINE\SALICYLAMIDE
     Route: 065
  3. DEPAS [Concomitant]
     Active Substance: ETIZOLAM
     Route: 065
  4. FAMOTIDINE. [Concomitant]
     Active Substance: FAMOTIDINE
     Route: 065
  5. CALTAN [Concomitant]
     Active Substance: CALCIUM CARBONATE
     Route: 065
  6. SELBEX [Concomitant]
     Active Substance: TEPRENONE
     Route: 065
  7. BLOPRESS [Concomitant]
     Active Substance: CANDESARTAN CILEXETIL
     Route: 065
  8. MOHRUS TAPE [Concomitant]
     Active Substance: KETOPROFEN
     Route: 061
  9. EUTENSIN [Concomitant]
     Route: 048
  10. CEPHADOL [Concomitant]
     Active Substance: DIPHENIDOL HYDROCHLORIDE
     Route: 065
  11. DIOVAN [Concomitant]
     Active Substance: VALSARTAN
     Route: 065
  12. BAYASPIRIN [Concomitant]
     Active Substance: ASPIRIN
     Route: 065
  13. FOSRENOL [Concomitant]
     Active Substance: LANTHANUM CARBONATE
     Route: 065
  14. EMPYNASE [Concomitant]
     Active Substance: PANCRELIPASE
     Route: 065
  15. CERCINE [Concomitant]
     Active Substance: DIAZEPAM
     Route: 065
  16. MAINTATE [Concomitant]
     Active Substance: BISOPROLOL FUMARATE
     Route: 065
  17. MIRCERA [Suspect]
     Active Substance: METHOXY POLYETHYLENE GLYCOL-EPOETIN BETA
     Route: 042
     Dates: start: 20140616
  18. ADALAT [Concomitant]
     Active Substance: NIFEDIPINE
     Route: 065
  19. ALOSENN [Concomitant]
     Active Substance: SENNA LEAF
     Route: 065
  20. CRESTOR [Concomitant]
     Active Substance: ROSUVASTATIN CALCIUM
     Route: 065
  21. SANCOBA [Concomitant]
     Active Substance: CYANOCOBALAMIN
     Route: 047
  22. PLAVIX [Concomitant]
     Active Substance: CLOPIDOGREL BISULFATE
     Route: 065
  23. FESIN [Concomitant]
     Active Substance: IRON SUCROSE
     Route: 065
  24. INDOMETACIN [Concomitant]
     Active Substance: INDOMETHACIN
     Route: 061
  25. FALKEN [Concomitant]
     Route: 065
  26. LOPEMIN [Concomitant]
     Active Substance: LOPERAMIDE HYDROCHLORIDE
     Route: 048
  27. SHAKUYAKUKANZOTO [Concomitant]
     Active Substance: HERBALS
     Route: 065
  28. LOBU [Concomitant]
     Active Substance: LOBUCAVIR
     Route: 065
  29. POLARAMINE [Concomitant]
     Active Substance: DEXCHLORPHENIRAMINE MALEATE
     Route: 065
  30. CHLOPHEDRIN S [Concomitant]
     Route: 065

REACTIONS (3)
  - Coronary artery occlusion [Recovering/Resolving]
  - Dyspnoea [Recovering/Resolving]
  - Vascular stent stenosis [Recovered/Resolved]

NARRATIVE: CASE EVENT DATE: 20140206
